FAERS Safety Report 6756253-8 (Version None)
Quarter: 2010Q2

REPORT INFORMATION
  Report Type: 
  Country: None (occurrence: None)
  Receive Date: 20100604
  Receipt Date: 20100524
  Transmission Date: 20101027
  Serious: Yes (Other)
  Sender: FDA-Public Use
  Company Number: US-PFIZER INC-2010065719

PATIENT
  Sex: Female

DRUGS (3)
  1. CHANTIX [Suspect]
     Indication: SMOKING CESSATION THERAPY
     Dosage: UNK
     Route: 048
     Dates: start: 20100501
  2. TRAMADOL [Suspect]
     Indication: BACK PAIN
     Dosage: UNK
  3. GLUCOPHAGE [Concomitant]
     Indication: POLYCYSTIC OVARIES
     Dosage: UNK

REACTIONS (2)
  - BACK PAIN [None]
  - BLOOD GLUCOSE INCREASED [None]
